FAERS Safety Report 21636175 (Version 1)
Quarter: 2022Q4

REPORT INFORMATION
  Report Type: Spontaneous
  Country: US (occurrence: US)
  Receive Date: 20221124
  Receipt Date: 20221124
  Transmission Date: 20230113
  Serious: Yes (Other)
  Sender: FDA-Public Use
  Company Number: US-STRIDES ARCOLAB LIMITED-2022SP012775

PATIENT
  Age: 19 Year
  Sex: Male

DRUGS (4)
  1. ATENOLOL [Suspect]
     Active Substance: ATENOLOL
     Indication: Aortic aneurysm
     Dosage: 100 MILLIGRAM
     Route: 065
  2. ATENOLOL [Suspect]
     Active Substance: ATENOLOL
     Indication: Prophylaxis
  3. LOSARTAN [Suspect]
     Active Substance: LOSARTAN
     Indication: Aortic aneurysm
     Dosage: 50 MILLIGRAM (PER DAY)
     Route: 065
  4. LOSARTAN [Suspect]
     Active Substance: LOSARTAN
     Indication: Prophylaxis

REACTIONS (1)
  - Drug ineffective [Unknown]
